FAERS Safety Report 19080837 (Version 1)
Quarter: 2021Q2

REPORT INFORMATION
  Report Type: Spontaneous
  Country: US (occurrence: US)
  Receive Date: 20210401
  Receipt Date: 20210401
  Transmission Date: 20210717
  Serious: No
  Sender: FDA-Public Use
  Company Number: US-ORGANON-O2103USA002126

PATIENT
  Sex: Female

DRUGS (2)
  1. COZAAR [Suspect]
     Active Substance: LOSARTAN POTASSIUM
     Indication: HYPERTENSION
     Dosage: DID NOT HAVE A YELLOW COATING
     Route: 048
  2. COZAAR [Suspect]
     Active Substance: LOSARTAN POTASSIUM
     Indication: HYPERTENSION
     Dosage: UNK (TABLETS WITH YELLOW COATING)
     Route: 048

REACTIONS (4)
  - Wrong technique in product usage process [Unknown]
  - Feeling abnormal [Unknown]
  - Product quality issue [Unknown]
  - Allergic reaction to excipient [Unknown]
